FAERS Safety Report 8847331 (Version 1)
Quarter: 2012Q4

REPORT INFORMATION
  Report Type: 
  Country: US (occurrence: US)
  Receive Date: 20121018
  Receipt Date: 20121018
  Transmission Date: 20130627
  Serious: No
  Sender: FDA-Public Use
  Company Number: US-ASTRAZENECA-2012SE77971

PATIENT
  Age: 57 Year
  Sex: Male

DRUGS (13)
  1. CAPRELSA [Suspect]
     Route: 048
  2. ATIVAN [Concomitant]
  3. CALCIUM [Concomitant]
  4. CENTRUM SILVER [Concomitant]
  5. COLACE [Concomitant]
  6. CYMBALTA [Concomitant]
  7. FENTANYL [Concomitant]
  8. GABAPENTIN [Concomitant]
  9. MIRALAX [Concomitant]
  10. OXYCONTIN [Concomitant]
  11. PANTOPRAZOLE [Concomitant]
  12. SYNTHROID [Concomitant]
  13. TYLOX [Concomitant]

REACTIONS (4)
  - Hot flush [Unknown]
  - Dyspnoea [Unknown]
  - Fatigue [Unknown]
  - Nausea [Unknown]
